FAERS Safety Report 19610490 (Version 1)
Quarter: 2021Q3

REPORT INFORMATION
  Report Type: Spontaneous
  Country: HR (occurrence: HR)
  Receive Date: 20210726
  Receipt Date: 20210726
  Transmission Date: 20211014
  Serious: Yes (Other)
  Sender: FDA-Public Use
  Company Number: HR-ABBVIE-21K-216-4005263-00

PATIENT
  Age: 50 Year
  Sex: Female

DRUGS (3)
  1. DECORTIN [Concomitant]
     Active Substance: PREDNISONE
     Indication: RHEUMATOID ARTHRITIS
     Route: 048
     Dates: start: 2009
  2. ARAVA [Concomitant]
     Active Substance: LEFLUNOMIDE
     Indication: RHEUMATOID ARTHRITIS
     Route: 048
     Dates: start: 20130314
  3. HUMIRA [Suspect]
     Active Substance: ADALIMUMAB
     Indication: RHEUMATOID ARTHRITIS
     Route: 058
     Dates: start: 20170810

REACTIONS (5)
  - Musculoskeletal disorder [Recovering/Resolving]
  - Therapeutic product effect decreased [Recovering/Resolving]
  - Arthropathy [Recovering/Resolving]
  - Rheumatoid arthritis [Recovering/Resolving]
  - Tenosynovitis [Recovering/Resolving]

NARRATIVE: CASE EVENT DATE: 20201201
